FAERS Safety Report 6802891-3 (Version None)
Quarter: 2010Q2

REPORT INFORMATION
  Report Type: 
  Country: None (occurrence: None)
  Receive Date: 20100628
  Receipt Date: 20100609
  Transmission Date: 20101027
  Serious: No
  Sender: FDA-Public Use
  Company Number: US-TYCO HEALTHCARE/MALLINCKRODT-T201000796

PATIENT

DRUGS (3)
  1. TECHNETIUM TC 99M SESTAMIBI [Suspect]
     Dosage: 10.1 RESTING DOSE
     Dates: start: 20100303, end: 20100303
  2. TECHNETIUM TC 99M SESTAMIBI [Suspect]
     Dosage: 27.1 STRESS DOSE
     Dates: start: 20100303, end: 20100303
  3. ULTRA-TECHNEKOW [Concomitant]
     Dosage: UNK
     Dates: start: 20100303

REACTIONS (1)
  - DRUG INEFFECTIVE [None]
